FAERS Safety Report 11273787 (Version 1)
Quarter: 2015Q3

REPORT INFORMATION
  Report Type: Spontaneous
  Country: US (occurrence: US)
  Receive Date: 20150715
  Receipt Date: 20150715
  Transmission Date: 20151125
  Serious: No
  Sender: FDA-Public Use
  Company Number: US-ENDO PHARMACEUTICALS INC.-201502149

PATIENT
  Age: 27 Year
  Sex: Male
  Weight: 65.83 kg

DRUGS (5)
  1. EDEX [Suspect]
     Active Substance: ALPROSTADIL
     Route: 017
     Dates: start: 2013
  2. SEROQUEL [Concomitant]
     Active Substance: QUETIAPINE FUMARATE
  3. EDEX [Suspect]
     Active Substance: ALPROSTADIL
     Route: 017
     Dates: start: 201502
  4. ZOLOFT [Concomitant]
     Active Substance: SERTRALINE HYDROCHLORIDE
  5. LITHIUM. [Concomitant]
     Active Substance: LITHIUM

REACTIONS (2)
  - Underdose [Recovered/Resolved]
  - Drug ineffective [Not Recovered/Not Resolved]

NARRATIVE: CASE EVENT DATE: 2013
